FAERS Safety Report 17370930 (Version 1)
Quarter: 2020Q1

REPORT INFORMATION
  Report Type: Spontaneous
  Country: US (occurrence: US)
  Receive Date: 20200205
  Receipt Date: 20200205
  Transmission Date: 20200409
  Serious: No
  Sender: FDA-Public Use
  Company Number: ADE 20-009

PATIENT
  Sex: Female

DRUGS (1)
  1. DIPHENHYDRAMINE HCL 25 MG [Suspect]
     Active Substance: DIPHENHYDRAMINE HYDROCHLORIDE
     Indication: DRUG HYPERSENSITIVITY
     Route: 048

REACTIONS (1)
  - Hypersensitivity [None]
